FAERS Safety Report 12418000 (Version 1)
Quarter: 2016Q2

REPORT INFORMATION
  Report Type: Spontaneous
  Country: FR (occurrence: FR)
  Receive Date: 20160531
  Receipt Date: 20160531
  Transmission Date: 20160815
  Serious: Yes (Hospitalization)
  Sender: FDA-Public Use
  Company Number: FR-ROCHE-1765792

PATIENT
  Age: 77 Year
  Sex: Male

DRUGS (15)
  1. LANTUS [Concomitant]
     Active Substance: INSULIN GLARGINE
     Dosage: IN THE EVENING
     Route: 065
  2. KESTIN [Concomitant]
     Active Substance: EBASTINE
     Route: 065
  3. FENOFIBRATE. [Concomitant]
     Active Substance: FENOFIBRATE
     Route: 065
  4. ROCEPHINE [Suspect]
     Active Substance: CEFTRIAXONE SODIUM
     Indication: CHOLECYSTITIS ACUTE
     Route: 065
     Dates: start: 20160403, end: 20160419
  5. LOVENOX [Suspect]
     Active Substance: ENOXAPARIN SODIUM
     Indication: PROPHYLAXIS
     Route: 065
     Dates: start: 20160403, end: 20160419
  6. BETAHISTINE [Concomitant]
     Active Substance: BETAHISTINE
     Route: 065
  7. DAIVOBET [Concomitant]
     Active Substance: BETAMETHASONE DIPROPIONATE\CALCIPOTRIENE
     Route: 065
  8. APIDRA [Concomitant]
     Active Substance: INSULIN GLULISINE
     Dosage: IN THE MORNING
     Route: 065
  9. DEXERYL (FRANCE) [Concomitant]
     Active Substance: GLYCERIN\PARAFFIN
  10. FLAGYL [Suspect]
     Active Substance: METRONIDAZOLE\METRONIDAZOLE HYDROCHLORIDE
     Indication: CHOLECYSTITIS ACUTE
     Route: 065
     Dates: start: 20160403, end: 20160419
  11. APIDRA [Concomitant]
     Active Substance: INSULIN GLULISINE
     Dosage: AT LUNCH TIME
     Route: 065
  12. KARDEGIC [Concomitant]
     Active Substance: ASPIRIN LYSINE
     Route: 065
  13. COUMADINE [Concomitant]
     Active Substance: WARFARIN SODIUM
     Dosage: ON ALTERNATE DAY
     Route: 065
     Dates: start: 201511
  14. APIDRA [Concomitant]
     Active Substance: INSULIN GLULISINE
     Dosage: IN THE EVENING
     Route: 065
  15. COUMADINE [Concomitant]
     Active Substance: WARFARIN SODIUM
     Dosage: ON ALTERNATE DAY
     Route: 065

REACTIONS (2)
  - Purpura [Recovered/Resolved]
  - Hypersensitivity vasculitis [Recovered/Resolved]

NARRATIVE: CASE EVENT DATE: 20160413
